FAERS Safety Report 20985190 (Version 1)
Quarter: 2022Q2

REPORT INFORMATION
  Report Type: Spontaneous
  Country: US (occurrence: None)
  Receive Date: 20220621
  Receipt Date: 20220621
  Transmission Date: 20220721
  Serious: No
  Sender: FDA-Public Use
  Company Number: US-ROCHE-3012774

PATIENT
  Sex: Female

DRUGS (5)
  1. XELODA [Suspect]
     Active Substance: CAPECITABINE
     Indication: Triple negative breast cancer
     Dosage: 4 COURSES OF 4000 MG
     Route: 048
  2. CYCLOPHOSPHAMIDE [Concomitant]
     Active Substance: CYCLOPHOSPHAMIDE
  3. DOXORUBICIN [Concomitant]
     Active Substance: DOXORUBICIN
     Dosage: RECEIVED 2 COURSES
  4. CARBOPLATIN [Concomitant]
     Active Substance: CARBOPLATIN
     Dosage: RECEIVED ONE COURSE
  5. DOCETAXEL [Concomitant]
     Active Substance: DOCETAXEL
     Dosage: RECEIVED 2 COURSES

REACTIONS (3)
  - Asthenia [Unknown]
  - Decreased appetite [Unknown]
  - Pyrexia [Unknown]
